FAERS Safety Report 7129538-3 (Version None)
Quarter: 2010Q4

REPORT INFORMATION
  Report Type: 
  Country: None (occurrence: None)
  Receive Date: 20101130
  Receipt Date: 20101119
  Transmission Date: 20110411
  Serious: Yes (Death)
  Sender: FDA-Public Use
  Company Number: JP-TYCO HEALTHCARE/MALLINCKRODT-T201002253

PATIENT
  Sex: Male
  Weight: 30.9 kg

DRUGS (6)
  1. METHADONE HYDROCHLORIDE [Suspect]
     Indication: PAIN
     Dosage: 30 MG, TID
     Route: 048
     Dates: start: 20101014, end: 20101105
  2. METHADONE HYDROCHLORIDE [Suspect]
     Dosage: 45 MG, TID
     Route: 048
     Dates: start: 20101106, end: 20101109
  3. OPSO [Concomitant]
     Dosage: UNK
  4. TPN [Concomitant]
     Dosage: 1000 ML, UNK
  5. CHEMOTHERAPEUTICS NOS [Concomitant]
     Indication: GASTRIC CANCER
     Dosage: UNK
     Dates: end: 20101006
  6. OXYCONTIN [Concomitant]
     Dosage: UNK
     Dates: end: 20101013

REACTIONS (1)
  - GASTRIC CANCER [None]
